FAERS Safety Report 7905975-1 (Version None)
Quarter: 2011Q4

REPORT INFORMATION
  Report Type: 
  Country: None (occurrence: None)
  Receive Date: 20111108
  Receipt Date: 20111024
  Transmission Date: 20120403
  Serious: Yes (Death, Hospitalization)
  Sender: FDA-Public Use
  Company Number: HA11-074-AE

PATIENT
  Age: 81 Year
  Sex: Female
  Weight: 51.2565 kg

DRUGS (27)
  1. GABAPENTIN [Suspect]
     Indication: PAIN IN EXTREMITY
     Dosage: 300MG AT BED TIME, ORAL
     Route: 048
     Dates: start: 20101227, end: 20101228
  2. GABAPENTIN [Suspect]
     Indication: NERVE COMPRESSION
     Dosage: 300MG AT BED TIME, ORAL
     Route: 048
     Dates: start: 20101227, end: 20101228
  3. HYDROCORTISONE [Concomitant]
  4. MECLOCYCLINE [Concomitant]
  5. NEURONTIN [Concomitant]
  6. POTASSIUM [Concomitant]
  7. NEURONTIN [Concomitant]
  8. SIMETHICONE [Concomitant]
  9. SUPLENA [Concomitant]
  10. ZAROXOLYN [Concomitant]
  11. SODIUM PHOSPHATES [Concomitant]
  12. MYLANTA [Concomitant]
  13. COREG [Concomitant]
  14. LEVOTHYROXINE SODIUM [Concomitant]
  15. POTASSIUM CHLORIDE [Concomitant]
  16. VICODIN [Concomitant]
  17. LASIX [Concomitant]
  18. LASIX [Concomitant]
  19. ASPIRIN [Concomitant]
  20. POTASSIUM CHLORIDE [Concomitant]
  21. LORTAB [Concomitant]
  22. HYDROCODONE BITARTRATE [Concomitant]
  23. KAYEXALATE [Concomitant]
  24. ONDANSETRON [Concomitant]
  25. METOLAZONE [Concomitant]
  26. CARVEDILOL [Concomitant]
  27. COUMADIN [Concomitant]

REACTIONS (14)
  - LETHARGY [None]
  - LOWER LIMB FRACTURE [None]
  - CARDIAC FAILURE CONGESTIVE [None]
  - RENAL FAILURE [None]
  - FEMUR FRACTURE [None]
  - DYSARTHRIA [None]
  - VOMITING [None]
  - TREMOR [None]
  - DIARRHOEA [None]
  - DIZZINESS [None]
  - CONDITION AGGRAVATED [None]
  - WEIGHT INCREASED [None]
  - DYSKINESIA [None]
  - ASTHENIA [None]
